FAERS Safety Report 5531382-5 (Version None)
Quarter: 2007Q4

REPORT INFORMATION
  Report Type: 
  Country: None (occurrence: None)
  Receive Date: 20071128
  Receipt Date: 20071120
  Transmission Date: 20080405
  Serious: Yes (Hospitalization)
  Sender: FDA-Public Use
  Company Number: 2007BI021328

PATIENT
  Age: 34 Year
  Sex: Male
  Weight: 86 kg

DRUGS (1)
  1. AVONEX [Suspect]
     Indication: MULTIPLE SCLEROSIS
     Dosage: 30 UG; QW; IM
     Route: 030
     Dates: start: 20050701

REACTIONS (5)
  - ASTHENIA [None]
  - CARDIOPULMONARY FAILURE [None]
  - ELECTROENCEPHALOGRAM ABNORMAL [None]
  - MULTIPLE SCLEROSIS RELAPSE [None]
  - TONGUE PARALYSIS [None]
